FAERS Safety Report 7542473-1 (Version None)
Quarter: 2011Q2

REPORT INFORMATION
  Report Type: 
  Country: None (occurrence: None)
  Receive Date: 20110613
  Receipt Date: 20110607
  Transmission Date: 20111010
  Serious: Yes (Other)
  Sender: FDA-Public Use
  Company Number: US-PFIZER INC-2011124622

PATIENT
  Sex: Male

DRUGS (1)
  1. SUTENT [Suspect]
     Dosage: 50 MG, CYCLIC, FOR 4 WEEKS EVERY 6 WEEKS FOR 4 CYCLES
     Route: 048

REACTIONS (1)
  - CONTUSION [None]
